FAERS Safety Report 7083307-1 (Version None)
Quarter: 2010Q4

REPORT INFORMATION
  Report Type: 
  Country: None (occurrence: None)
  Receive Date: 20101027
  Receipt Date: 20101012
  Transmission Date: 20110411
  Serious: Yes (Hospitalization)
  Sender: FDA-Public Use
  Company Number: 1000015481

PATIENT
  Age: 70 Year
  Sex: Female

DRUGS (4)
  1. CITALOPRAM HYDROBROMIDE [Suspect]
     Indication: DEPRESSION
  2. BELOC ZOK (METOPROLOL SUCCINATE) (METOPROLOL SUCCINATE) [Concomitant]
  3. PANTOZO (PANTOPRAZOLE) (PANTOPRAZOLE) [Concomitant]
  4. SIMVAST (SIMVASTATIN) (SIMVASTATIN) [Concomitant]

REACTIONS (7)
  - DISORIENTATION [None]
  - FALL [None]
  - HYPERKALAEMIA [None]
  - HYPERTENSION [None]
  - HYPONATRAEMIA [None]
  - INAPPROPRIATE ANTIDIURETIC HORMONE SECRETION [None]
  - SYNCOPE [None]
